FAERS Safety Report 25524274 (Version 1)
Quarter: 2025Q3

REPORT INFORMATION
  Report Type: Spontaneous
  Country: TH (occurrence: TH)
  Receive Date: 20250707
  Receipt Date: 20250707
  Transmission Date: 20251020
  Serious: Yes (Hospitalization)
  Sender: JUBILANT
  Company Number: TH-JUBILANT CADISTA PHARMACEUTICALS-2025JUB00081

PATIENT
  Age: 15 Year
  Sex: Female

DRUGS (1)
  1. PREDNISONE [Suspect]
     Active Substance: PREDNISONE
     Indication: Systemic lupus erythematosus
     Dosage: MEAN DOSE OF  26.0 (SD 10.4) MG/DAY

REACTIONS (1)
  - Posterior reversible encephalopathy syndrome [Recovered/Resolved]
